FAERS Safety Report 23926706 (Version 1)
Quarter: 2024Q2

REPORT INFORMATION
  Report Type: Spontaneous
  Country: NL (occurrence: None)
  Receive Date: 20240531
  Receipt Date: 20240531
  Transmission Date: 20240716
  Serious: Yes (Hospitalization)
  Sender: FDA-Public Use
  Company Number: 2024A122839

PATIENT
  Age: 75 Year
  Sex: Male
  Weight: 58 kg

DRUGS (8)
  1. DAPAGLIFLOZIN [Suspect]
     Active Substance: DAPAGLIFLOZIN
     Indication: Cardiac failure
     Dosage: 1 X PER DAY 1 PIECE
     Dates: start: 20240104, end: 20240329
  2. PANTOPRAZOLE [Concomitant]
     Active Substance: PANTOPRAZOLE
     Dosage: GASTRO-RESISTANT TABLET, 40 MG (MILLIGRAM)
  3. ASACOL [Concomitant]
     Active Substance: MESALAMINE
     Dosage: 500 MG ORALLY 3 TIMES A DAY
  4. METOPROLOL [Concomitant]
     Active Substance: METOPROLOL
     Dosage: TABLET, 50 MG (MILLIGRAM)
  5. LISINOPRIL [Concomitant]
     Active Substance: LISINOPRIL
     Dosage: TABLET, 5 MG (MILLIGRAM)
  6. IPRATROPIUM [Concomitant]
     Active Substance: IPRATROPIUM
     Dosage: AEROSOL, 20 ?G/DOSE (MICROGRAMS PER DOSE)
  7. RIVAROXABAN [Concomitant]
     Active Substance: RIVAROXABAN
     Dosage: TABLET, 20 MG (MILLIGRAM)
  8. ALBUTEROL [Concomitant]
     Active Substance: ALBUTEROL
     Dosage: INHALATION POWDER, 100 ?G/DOSE (MICROGRAMS PER DOSE)

REACTIONS (1)
  - Myositis [Unknown]
